FAERS Safety Report 7117978-8 (Version None)
Quarter: 2010Q4

REPORT INFORMATION
  Report Type: 
  Country: None (occurrence: None)
  Receive Date: 20101118
  Receipt Date: 20101118
  Transmission Date: 20110411
  Serious: Yes (Other)
  Sender: FDA-Public Use
  Company Number: None

PATIENT
  Age: 39 Year
  Sex: Female
  Weight: 61.2356 kg

DRUGS (1)
  1. MIRENA [Suspect]
     Indication: CONTRACEPTION
     Dosage: INTRACERVICAL
     Route: 019
     Dates: start: 20080801, end: 20100801

REACTIONS (3)
  - ALOPECIA [None]
  - HAIR DISORDER [None]
  - MIGRAINE [None]
